FAERS Safety Report 22100140 (Version 3)
Quarter: 2023Q1

REPORT INFORMATION
  Report Type: Spontaneous
  Country: US (occurrence: US)
  Receive Date: 20230315
  Receipt Date: 20230320
  Transmission Date: 20230418
  Serious: No
  Sender: FDA-Public Use
  Company Number: US-PFIZER INC-202300109820

PATIENT
  Age: 53 Year
  Sex: Female
  Weight: 87.54 kg

DRUGS (8)
  1. ESTRING [Suspect]
     Active Substance: ESTRADIOL
     Indication: Hysterectomy
     Dosage: RING INSERTED VAGINALLY
     Route: 067
     Dates: start: 20230303, end: 20230312
  2. ESTRING [Suspect]
     Active Substance: ESTRADIOL
     Indication: Menopausal symptoms
  3. ESTRING [Suspect]
     Active Substance: ESTRADIOL
     Indication: Vulvovaginal dryness
  4. ESTRING [Suspect]
     Active Substance: ESTRADIOL
     Indication: Vulvovaginal pain
  5. ESTRING [Suspect]
     Active Substance: ESTRADIOL
     Indication: Dyspareunia
  6. ROPINIROLE [Concomitant]
     Active Substance: ROPINIROLE
     Dosage: 50 MG, 1X/DAY (ONCE A DAY IN EVENING BEFORE BED, BY MOUTH)
     Route: 048
  7. LEXAPRO [Concomitant]
     Active Substance: ESCITALOPRAM OXALATE
     Indication: Anxiety
     Dosage: 10 MG, 1X/DAY
     Route: 048
  8. BOTOX [Concomitant]
     Active Substance: ONABOTULINUMTOXINA
     Indication: Migraine
     Dosage: UNK, EVERY 3 MONTHS

REACTIONS (4)
  - Dysmenorrhoea [Recovering/Resolving]
  - Back pain [Recovering/Resolving]
  - Muscle spasms [Unknown]
  - Wrong strength [Unknown]

NARRATIVE: CASE EVENT DATE: 20230301
